FAERS Safety Report 7409505-2 (Version None)
Quarter: 2011Q2

REPORT INFORMATION
  Report Type: 
  Country: None (occurrence: None)
  Receive Date: 20110407
  Receipt Date: 20110407
  Transmission Date: 20111010
  Serious: Yes (Hospitalization)
  Sender: FDA-Public Use
  Company Number: None

PATIENT
  Age: 62 Year
  Sex: Male

DRUGS (2)
  1. INSULIN [Suspect]
     Indication: DIABETES MELLITUS
     Dosage: 65 UNITS BID SQ
     Route: 058
     Dates: start: 20110104
  2. INSULIN [Suspect]
     Indication: DIABETES MELLITUS
     Dosage: 4 UNITS OTHER SQ
     Route: 058
     Dates: start: 20060920

REACTIONS (8)
  - TREMOR [None]
  - LETHARGY [None]
  - BLOOD PRESSURE DECREASED [None]
  - DIZZINESS [None]
  - GAIT DISTURBANCE [None]
  - FEELING ABNORMAL [None]
  - HYPOGLYCAEMIA [None]
  - FALL [None]
